FAERS Safety Report 25648187 (Version 1)
Quarter: 2025Q3

REPORT INFORMATION
  Report Type: Spontaneous
  Country: AU (occurrence: AU)
  Receive Date: 20250806
  Receipt Date: 20250806
  Transmission Date: 20251021
  Serious: Yes (Death)
  Sender: DOUGLAS PHARMACEUTICALS
  Company Number: AU-DOUGLAS PHARMACEUTICALS US-2025DGL00306

PATIENT
  Sex: Male

DRUGS (3)
  1. CLOZAPINE [Suspect]
     Active Substance: CLOZAPINE
     Dates: start: 20240603, end: 20240619
  2. CLOZAPINE [Suspect]
     Active Substance: CLOZAPINE
     Dates: start: 20250716, end: 20250718
  3. CLOZAPINE [Suspect]
     Active Substance: CLOZAPINE
     Dates: start: 20240620, end: 20250715

REACTIONS (1)
  - Adverse drug reaction [Fatal]

NARRATIVE: CASE EVENT DATE: 20250719
